FAERS Safety Report 17793739 (Version 1)
Quarter: 2020Q2

REPORT INFORMATION
  Report Type: Spontaneous
  Country: CN (occurrence: CN)
  Receive Date: 20200515
  Receipt Date: 20200515
  Transmission Date: 20200714
  Serious: Yes (Hospitalization, Other)
  Sender: FDA-Public Use
  Company Number: CN-ALLERGAN-2019306US

PATIENT
  Sex: Female

DRUGS (5)
  1. ESCITALOPRAM OXALATE - BP [Suspect]
     Active Substance: ESCITALOPRAM OXALATE
     Indication: DEPRESSION
     Dosage: 1.5 DF, QD
     Route: 065
     Dates: start: 20200426
  2. LITHIUM CARBONATE. [Concomitant]
     Active Substance: LITHIUM CARBONATE
     Indication: PRODUCT USED FOR UNKNOWN INDICATION
     Route: 065
  3. SODIUM VALPROATE [Concomitant]
     Active Substance: VALPROATE SODIUM
     Indication: PRODUCT USED FOR UNKNOWN INDICATION
     Route: 065
  4. ESCITALOPRAM OXALATE - BP [Suspect]
     Active Substance: ESCITALOPRAM OXALATE
     Dosage: 1.5 DF, QD
     Route: 065
     Dates: start: 2018, end: 201901
  5. ESCITALOPRAM OXALATE - BP [Suspect]
     Active Substance: ESCITALOPRAM OXALATE
     Dosage: 1 DF, QD
     Route: 065
     Dates: start: 2018, end: 2018

REACTIONS (5)
  - Cachexia [Unknown]
  - Mania [Unknown]
  - Bipolar disorder [Unknown]
  - Decreased appetite [Unknown]
  - Weight decreased [Unknown]

NARRATIVE: CASE EVENT DATE: 2018
